FAERS Safety Report 15375958 (Version 1)
Quarter: 2018Q3

REPORT INFORMATION
  Report Type: Spontaneous
  Country: US (occurrence: US)
  Receive Date: 20180912
  Receipt Date: 20180912
  Transmission Date: 20181010
  Serious: No
  Sender: FDA-Public Use
  Company Number: US-GLAXOSMITHKLINE-US2018162031

PATIENT
  Age: 66 Year
  Sex: Male

DRUGS (1)
  1. DICLOFENAC SODIUM GEL [Suspect]
     Active Substance: DICLOFENAC SODIUM
     Indication: ARTHRALGIA
     Dosage: 4 MG, UNK
     Route: 061
     Dates: start: 20180804

REACTIONS (4)
  - Product use in unapproved indication [Unknown]
  - Product administered at inappropriate site [Unknown]
  - Underdose [Unknown]
  - Drug effective for unapproved indication [Unknown]
